FAERS Safety Report 7803487-7 (Version None)
Quarter: 2011Q4

REPORT INFORMATION
  Report Type: 
  Country: None (occurrence: None)
  Receive Date: 20111007
  Receipt Date: 20110922
  Transmission Date: 20120403
  Serious: Yes (Hospitalization, Other)
  Sender: FDA-Public Use
  Company Number: PL-ROCHE-800162

PATIENT
  Sex: Female
  Weight: 49.5 kg

DRUGS (7)
  1. LORISTA [Concomitant]
     Indication: HYPERTENSION
     Route: 048
     Dates: start: 20090101
  2. MIRCERA [Suspect]
     Indication: NEPHROGENIC ANAEMIA
     Route: 058
  3. NITRENDIPINO [Concomitant]
     Indication: HYPERTENSION
     Route: 048
  4. RAMIPRIL [Concomitant]
     Indication: HYPERTENSION
     Route: 048
     Dates: start: 20090101
  5. BETO ZK [Concomitant]
     Indication: HYPERTENSION
     Route: 048
     Dates: start: 20090101
  6. MIRCERA [Suspect]
     Route: 058
  7. FUROSEMIDE [Concomitant]
     Indication: HYPERTENSION
     Route: 048
     Dates: start: 20090101

REACTIONS (2)
  - HYPERTENSIVE CRISIS [None]
  - HYPERTENSIVE ENCEPHALOPATHY [None]
